FAERS Safety Report 9457382 (Version 1)
Quarter: 2013Q3

REPORT INFORMATION
  Report Type: Report from Study
  Country: DK (occurrence: DK)
  Receive Date: 20130814
  Receipt Date: 20130814
  Transmission Date: 20140515
  Serious: Yes (Death, Hospitalization)
  Sender: FDA-Public Use
  Company Number: DK-PFIZER INC-2013233644

PATIENT
  Age: 67 Year
  Sex: Male

DRUGS (1)
  1. PIROXICAM [Suspect]
     Indication: OSTEOARTHRITIS
     Dosage: 200 MG EVERY 2 DAY
     Route: 048
     Dates: start: 20100125

REACTIONS (1)
  - Myocardial infarction [Fatal]
